FAERS Safety Report 14100131 (Version 1)
Quarter: 2017Q4

REPORT INFORMATION
  Report Type: Spontaneous
  Country: ES (occurrence: ES)
  Receive Date: 20171017
  Receipt Date: 20171017
  Transmission Date: 20180321
  Serious: Yes (Hospitalization)
  Sender: FDA-Public Use
  Company Number: PHHY2017ES148510

PATIENT
  Age: 7 Year
  Sex: Female

DRUGS (12)
  1. CICLOFOSFAMIDA [Suspect]
     Active Substance: CYCLOPHOSPHAMIDE
     Indication: ACUTE LYMPHOCYTIC LEUKAEMIA
     Dosage: 440 MG, QD
     Route: 050
     Dates: start: 20170519, end: 20170523
  2. ZOVIRAX [Concomitant]
     Active Substance: ACYCLOVIR
     Indication: PROPHYLAXIS
     Dosage: 240 MG, BID
     Route: 048
     Dates: start: 20170104
  3. MESNA. [Concomitant]
     Active Substance: MESNA
     Indication: HAEMORRHAGE PROPHYLAXIS
     Dosage: 200 MG, QD
     Route: 050
     Dates: start: 20170519, end: 20170523
  4. OMEPRAZOLE. [Concomitant]
     Active Substance: OMEPRAZOLE
     Indication: GASTRITIS PROPHYLAXIS
     Dosage: 20 MG, QD
     Route: 065
     Dates: start: 20170517, end: 20170529
  5. ETOPOSIDO [Suspect]
     Active Substance: ETOPOSIDE
     Indication: ACUTE LYMPHOCYTIC LEUKAEMIA
     Dosage: 100 MG, QD
     Route: 050
     Dates: start: 20170519, end: 20170523
  6. SEPTRIN [Concomitant]
     Active Substance: SULFAMETHOXAZOLE\TRIMETHOPRIM
     Indication: ANTIBIOTIC PROPHYLAXIS
     Dosage: 20 MG, QD
     Route: 048
     Dates: start: 20170104
  7. ATRIANCE [Suspect]
     Active Substance: NELARABINE
     Dosage: UNK
     Route: 065
     Dates: start: 20170622, end: 20170626
  8. PIPERACILINA+TAZOBACTAM [Concomitant]
     Indication: PRODUCT USED FOR UNKNOWN INDICATION
     Dosage: 2.3 MG, QID
     Route: 050
     Dates: start: 20170526, end: 20170529
  9. ATRIANCE [Suspect]
     Active Substance: NELARABINE
     Indication: ACUTE LYMPHOCYTIC LEUKAEMIA
     Dosage: 650 MG, UNK (5 TIMES A DAY)
     Route: 050
     Dates: start: 20170526, end: 20170602
  10. ONDANSETRON [Concomitant]
     Active Substance: ONDANSETRON
     Indication: PROPHYLAXIS OF NAUSEA AND VOMITING
     Dosage: 4 MG, QID
     Route: 048
     Dates: start: 20170517, end: 20170531
  11. ENOXAPARIN [Concomitant]
     Active Substance: ENOXAPARIN
     Indication: THROMBOSIS PROPHYLAXIS
     Dosage: 28 MG, BID
     Route: 058
     Dates: start: 20161207
  12. DEXAMETASONA [Concomitant]
     Active Substance: DEXAMETHASONE
     Indication: PRODUCT USED FOR UNKNOWN INDICATION
     Dosage: 2 MG, TID
     Route: 050
     Dates: start: 20170519, end: 20170529

REACTIONS (2)
  - Pneumonitis [Not Recovered/Not Resolved]
  - Intention tremor [Recovered/Resolved]

NARRATIVE: CASE EVENT DATE: 20170527
